FAERS Safety Report 15959665 (Version 3)
Quarter: 2019Q2

REPORT INFORMATION
  Report Type: Spontaneous
  Country: US (occurrence: US)
  Receive Date: 20190214
  Receipt Date: 20190521
  Transmission Date: 20190711
  Serious: No
  Sender: FDA-Public Use
  Company Number: US-HTU-2018US018149

PATIENT
  Sex: Female

DRUGS (1)
  1. VALCHLOR [Suspect]
     Active Substance: MECHLORETHAMINE
     Indication: CUTANEOUS T-CELL LYMPHOMA
     Dosage: THIN FILM, QD
     Dates: start: 20181023

REACTIONS (5)
  - Intentional dose omission [Not Recovered/Not Resolved]
  - Application site scab [Recovered/Resolved]
  - Skin irritation [Recovered/Resolved]
  - Nasopharyngitis [Recovered/Resolved]
  - Application site pain [Recovered/Resolved]
